FAERS Safety Report 20150037 (Version 2)
Quarter: 2021Q4

REPORT INFORMATION
  Report Type: Spontaneous
  Country: US (occurrence: US)
  Receive Date: 20211206
  Receipt Date: 20211210
  Transmission Date: 20220303
  Serious: Yes (Death, Life-Threatening, Hospitalization, Other)
  Sender: FDA-Public Use
  Company Number: US-CIPLA LTD.-2021US07821

PATIENT

DRUGS (1)
  1. TESTOSTERONE [Suspect]
     Active Substance: TESTOSTERONE
     Indication: Hypogonadism
     Dosage: UNK
     Route: 065

REACTIONS (6)
  - Cholangiocarcinoma [Fatal]
  - Metastases to peritoneum [Fatal]
  - Ascites [Fatal]
  - Metastasis [Fatal]
  - Renal failure [Fatal]
  - Sepsis [Fatal]
